FAERS Safety Report 7410729-9 (Version None)
Quarter: 2011Q1

REPORT INFORMATION
  Report Type: 
  Country: None (occurrence: None)
  Receive Date: 20110302
  Receipt Date: 20101101
  Transmission Date: 20110831
  Serious: No
  Sender: FDA-Public Use
  Company Number: 015081

PATIENT
  Sex: Male
  Weight: 86.2 kg

DRUGS (4)
  1. PENTASA [Concomitant]
  2. LANSOPRAZOLE [Concomitant]
  3. CIMZIA [Suspect]
     Indication: CROHN'S DISEASE
     Dosage: (400 MG 1X/MONTH SUBCUTANEOUS)
     Route: 058
     Dates: start: 20100301
  4. PREDNISONE [Concomitant]

REACTIONS (4)
  - FEELING ABNORMAL [None]
  - DRUG INEFFECTIVE [None]
  - PAIN [None]
  - ABDOMINAL PAIN [None]
